FAERS Safety Report 5675482-8 (Version None)
Quarter: 2008Q1

REPORT INFORMATION
  Report Type: 
  Country: None (occurrence: None)
  Receive Date: 20080321
  Receipt Date: 20080312
  Transmission Date: 20080703
  Serious: Yes (Other)
  Sender: FDA-Public Use
  Company Number: JP-JNJFOC-20080301864

PATIENT
  Sex: Female
  Weight: 47 kg

DRUGS (6)
  1. REMICADE [Suspect]
     Route: 042
  2. REMICADE [Suspect]
     Dosage: 4 INFLIXIMAB INFUSION WERE ADMINISTERED ON UNSPECIFIED DATES
     Route: 042
  3. REMICADE [Suspect]
     Indication: CROHN'S DISEASE
     Route: 042
  4. IMURAN [Suspect]
     Indication: CROHN'S DISEASE
     Route: 048
  5. GASTER D [Concomitant]
     Indication: GASTRIC ULCER
     Route: 048
  6. SELBEX [Concomitant]
     Indication: GASTRIC ULCER
     Route: 048

REACTIONS (2)
  - LEUKOENCEPHALOMYELITIS [None]
  - MENINGITIS VIRAL [None]
